FAERS Safety Report 14834047 (Version 1)
Quarter: 2018Q2

REPORT INFORMATION
  Report Type: Spontaneous
  Country: US (occurrence: US)
  Receive Date: 20180501
  Receipt Date: 20180501
  Transmission Date: 20180711
  Serious: No
  Sender: FDA-Public Use
  Company Number: US-ROCHE-2095539

PATIENT
  Sex: Female
  Weight: 47.67 kg

DRUGS (5)
  1. ALECENSA [Suspect]
     Active Substance: ALECTINIB HYDROCHLORIDE
     Indication: BRONCHIAL CARCINOMA
     Route: 048
     Dates: start: 20171227
  2. CALCIUM ACETATE. [Concomitant]
     Active Substance: CALCIUM ACETATE
     Dosage: ONGOING: UNKNOWN
     Route: 048
     Dates: start: 20171226
  3. NIFEDIPINE. [Concomitant]
     Active Substance: NIFEDIPINE
     Dosage: ONGOING: UNKNOWN
     Route: 048
     Dates: start: 20171226
  4. FISH OIL [Concomitant]
     Active Substance: FISH OIL
     Dosage: ONGOING: UNKNOWN
     Route: 048
     Dates: start: 20171226
  5. PREDNISONE. [Concomitant]
     Active Substance: PREDNISONE
     Dosage: ONGOING: UNKNOWN
     Route: 048
     Dates: start: 20180221

REACTIONS (2)
  - Neoplasm progression [Unknown]
  - Drug ineffective [Unknown]
